FAERS Safety Report 22255604 (Version 1)
Quarter: 2023Q2

REPORT INFORMATION
  Report Type: Report from Study
  Country: US (occurrence: US)
  Receive Date: 20230426
  Receipt Date: 20230426
  Transmission Date: 20230722
  Serious: Yes (Hospitalization)
  Sender: FDA-Public Use
  Company Number: US-MYLANLABS-2023M1043704

PATIENT
  Sex: Male

DRUGS (1)
  1. CLOZAPINE [Suspect]
     Active Substance: CLOZAPINE
     Indication: Product used for unknown indication
     Dosage: 600 MILLIGRAM, QD, (100 MG, TAKE 1 TWO TIMES DAILY AND 200 MG TABLET, TAKE 1 TWO TIMES DAILY)
     Route: 048

REACTIONS (1)
  - Hospitalisation [Recovered/Resolved]
